FAERS Safety Report 23931938 (Version 2)
Quarter: 2024Q2

REPORT INFORMATION
  Report Type: Spontaneous
  Country: FR (occurrence: FR)
  Receive Date: 20240603
  Receipt Date: 20240611
  Transmission Date: 20240716
  Serious: Yes (Disabling)
  Sender: FDA-Public Use
  Company Number: FR-Accord-426086

PATIENT
  Age: 25 Year
  Sex: Male
  Weight: 78 kg

DRUGS (5)
  1. CLOZAPINE [Suspect]
     Active Substance: CLOZAPINE
     Indication: Schizophrenia
     Dates: start: 202203, end: 202208
  2. OLANZAPINE [Suspect]
     Active Substance: OLANZAPINE
     Indication: Schizophrenia
     Dosage: 20MG OF PER DAY
     Route: 048
     Dates: start: 202210, end: 202211
  3. CLOZAPINE [Suspect]
     Active Substance: CLOZAPINE
     Indication: Schizophrenia
     Dates: start: 2022, end: 2022
  4. OLANZAPINE [Suspect]
     Active Substance: OLANZAPINE
     Indication: Schizophrenia
     Dosage: TRIED REDUCING OLANZAPINE TO 5 MG/DAY ON HIS OWN, BUT NO EFFECT ON CU SYMPTOMS
     Route: 048
     Dates: start: 2022, end: 202211
  5. CLOZAPINE [Suspect]
     Active Substance: CLOZAPINE
     Indication: Schizophrenia
     Dates: start: 2022, end: 202208

REACTIONS (2)
  - Urticaria cholinergic [Recovered/Resolved]
  - Type I hypersensitivity [Recovered/Resolved]

NARRATIVE: CASE EVENT DATE: 20220701
